FAERS Safety Report 4521929-X (Version None)
Quarter: 2004Q4

REPORT INFORMATION
  Report Type: 
  Country: None (occurrence: None)
  Receive Date: 20041209
  Receipt Date: 20041202
  Transmission Date: 20050328
  Serious: Yes (Other)
  Sender: FDA-Public Use
  Company Number: US-AMGEN-US098658

PATIENT
  Age: 77 Year
  Sex: Male
  Weight: 57.5 kg

DRUGS (9)
  1. PROCRIT [Suspect]
     Indication: RENAL FAILURE CHRONIC
     Dates: start: 20030101, end: 20040907
  2. EPOGEN [Suspect]
     Indication: DIALYSIS
     Route: 042
     Dates: start: 20040907
  3. ATARAX [Concomitant]
     Dates: start: 20041026
  4. ZOCOR [Concomitant]
     Dates: start: 20040809
  5. ALDACTONE [Concomitant]
     Dates: start: 20040809
  6. ALTACE [Concomitant]
     Dates: start: 20040809
  7. DIAZEPAM [Concomitant]
     Dates: start: 20040809
  8. PREVACID [Concomitant]
     Dates: start: 20040809
  9. ALLOPURINOL [Concomitant]
     Dates: start: 20040809

REACTIONS (5)
  - BIOPSY BONE MARROW ABNORMAL [None]
  - DIALYSIS [None]
  - NORMOCHROMIC NORMOCYTIC ANAEMIA [None]
  - THERAPEUTIC RESPONSE DECREASED [None]
  - THROMBOCYTOPENIA [None]
